FAERS Safety Report 22206386 (Version 1)
Quarter: 2023Q2

REPORT INFORMATION
  Report Type: Spontaneous
  Country: US (occurrence: None)
  Receive Date: 20230412
  Receipt Date: 20230412
  Transmission Date: 20230721
  Serious: Yes (Disabling)
  Sender: FDA-Public Use
  Company Number: None

PATIENT
  Age: 49 Year
  Sex: Female
  Weight: 69.75 kg

DRUGS (5)
  1. KLONOPIN [Suspect]
     Active Substance: CLONAZEPAM
     Indication: Anxiety
     Dosage: OTHER QUANTITY : 1 TABLET(S);?FREQUENCY : TWICE A DAY;?
     Route: 048
  2. PROPRANOLOL [Concomitant]
     Active Substance: PROPRANOLOL HYDROCHLORIDE
  3. MELATONIN [Concomitant]
     Active Substance: MELATONIN
  4. HERBALS\TURMERIC [Concomitant]
     Active Substance: HERBALS\TURMERIC
  5. MAGNESIUM [Concomitant]
     Active Substance: MAGNESIUM

REACTIONS (15)
  - Drug dependence [None]
  - Drug withdrawal syndrome [None]
  - Suicidal ideation [None]
  - Insomnia [None]
  - Anxiety [None]
  - Depression [None]
  - Fear [None]
  - Agoraphobia [None]
  - Impaired work ability [None]
  - Amnesia [None]
  - Cognitive disorder [None]
  - Weight decreased [None]
  - Myoclonus [None]
  - Tinnitus [None]
  - Postural orthostatic tachycardia syndrome [None]

NARRATIVE: CASE EVENT DATE: 20220919
